FAERS Safety Report 8121123-X (Version None)
Quarter: 2012Q1

REPORT INFORMATION
  Report Type: 
  Country: None (occurrence: None)
  Receive Date: 20120208
  Receipt Date: 20120201
  Transmission Date: 20120608
  Serious: Yes (Hospitalization)
  Sender: FDA-Public Use
  Company Number: SE-BRISTOL-MYERS SQUIBB COMPANY-14826234

PATIENT
  Age: 65 Year
  Sex: Male

DRUGS (2)
  1. PREDNISOLONE [Concomitant]
     Dosage: PREDNISOLONE TABLET.
  2. ORENCIA [Suspect]
     Indication: RHEUMATOID ARTHRITIS
     Dosage: SOLN FOR INF 250MG
     Route: 042
     Dates: start: 20071207

REACTIONS (2)
  - PYREXIA [None]
  - PALPITATIONS [None]
